FAERS Safety Report 4289195-0 (Version None)
Quarter: 2004Q1

REPORT INFORMATION
  Report Type: 
  Country: None (occurrence: None)
  Receive Date: 20040115
  Receipt Date: 20031022
  Transmission Date: 20041129
  Serious: Yes (Life-Threatening)
  Sender: FDA-Public Use
  Company Number: 202993

PATIENT
  Age: 53 Year
  Sex: Male

DRUGS (1)
  1. ACTIVASE [Suspect]
     Indication: ACUTE MYOCARDIAL INFARCTION
     Dosage: 95 MG, SINGLE, INTRAVENOUS
     Route: 042
     Dates: start: 19990301

REACTIONS (1)
  - HAEMORRHAGE INTRACRANIAL [None]
